FAERS Safety Report 5932358-6 (Version None)
Quarter: 2008Q4

REPORT INFORMATION
  Report Type: 
  Country: None (occurrence: None)
  Receive Date: 20081027
  Receipt Date: 20081027
  Transmission Date: 20090506
  Serious: Yes (Other)
  Sender: FDA-Public Use
  Company Number: None

PATIENT
  Age: 10 Year
  Sex: Male
  Weight: 43.0917 kg

DRUGS (3)
  1. ABILIFY [Suspect]
     Indication: DEPRESSION
     Dosage: 1 DAILY PO
     Route: 048
     Dates: start: 20080313, end: 20081021
  2. MIRTAZAPINE [Suspect]
     Indication: SOMNOLENCE
     Dosage: 1 BEDTIME PO
     Route: 048
     Dates: start: 20080313, end: 20081021
  3. . [Concomitant]

REACTIONS (6)
  - ABDOMINAL PAIN [None]
  - BLOOD URINE PRESENT [None]
  - CHILLS [None]
  - DIARRHOEA [None]
  - MYDRIASIS [None]
  - VOMITING [None]
